FAERS Safety Report 8977420 (Version 6)
Quarter: 2014Q3

REPORT INFORMATION
  Report Type: Report from Study
  Country: CA (occurrence: CA)
  Receive Date: 20121219
  Receipt Date: 20140918
  Transmission Date: 20150326
  Serious: Yes (Hospitalization, Other)
  Sender: FDA-Public Use
  Company Number: PHHY2011CA93275

PATIENT
  Age: 66 Year
  Sex: Male

DRUGS (1)
  1. SANDOSTATIN LAR DEPOT [Suspect]
     Active Substance: OCTREOTIDE ACETATE
     Indication: NEUROENDOCRINE CARCINOMA METASTATIC
     Dosage: 30 MG, EVERY 4 WEEKS
     Route: 030
     Dates: start: 20090727

REACTIONS (10)
  - Plasma cell myeloma [Unknown]
  - Injection site mass [Unknown]
  - Cough [Recovered/Resolved]
  - Decreased immune responsiveness [Unknown]
  - Blood pressure diastolic decreased [Unknown]
  - Blood pressure systolic increased [Not Recovered/Not Resolved]
  - Platelet count decreased [Unknown]
  - Second primary malignancy [Unknown]
  - Arthralgia [Recovering/Resolving]
  - Injection site pain [Unknown]

NARRATIVE: CASE EVENT DATE: 20121204
